FAERS Safety Report 17188498 (Version 1)
Quarter: 2019Q4

REPORT INFORMATION
  Report Type: Other
  Country: DE (occurrence: DE)
  Receive Date: 20191222
  Receipt Date: 20191222
  Transmission Date: 20200122
  Serious: Yes (Hospitalization, Other)
  Sender: FDA-Public Use
  Company Number: DE-CELLTRION INC.-2019DE027416

PATIENT

DRUGS (25)
  1. RITUXIMAB (UNKNOWN) [Suspect]
     Active Substance: RITUXIMAB
     Indication: DIFFUSE LARGE B-CELL LYMPHOMA
     Dosage: 544 MG, (INFUSION RATE 100 (ML/MIN) FROM 19:40-22:10
     Route: 041
     Dates: start: 20180314, end: 20180314
  2. VINCRISTINE [Suspect]
     Active Substance: VINCRISTINE
     Indication: DIFFUSE LARGE B-CELL LYMPHOMA
     Dosage: 1 MG, UNK
     Route: 041
     Dates: start: 20180315, end: 20180315
  3. RITUXIMAB (UNKNOWN) [Suspect]
     Active Substance: RITUXIMAB
     Dosage: 550 MG, Q3W
     Route: 042
  4. DOXORUBICIN [Suspect]
     Active Substance: DOXORUBICIN
     Dosage: 36.3 MG, (INFUSION TIME 09:30-10:30)
     Route: 041
     Dates: start: 20180405, end: 20180405
  5. PREDNISONE. [Suspect]
     Active Substance: PREDNISONE
     Dosage: 250 MG, UNK
     Route: 048
     Dates: start: 20180517, end: 20180521
  6. CYCLOPHOSPHAMIDE. [Suspect]
     Active Substance: CYCLOPHOSPHAMIDE
     Dosage: 580 MG, UNK
     Route: 041
     Dates: start: 20180517, end: 20180517
  7. RITUXIMAB (UNKNOWN) [Suspect]
     Active Substance: RITUXIMAB
     Dosage: 544 MG, (INFUSION TIME:15:45-21:15
     Route: 041
     Dates: start: 20180404, end: 20180404
  8. DOXORUBICIN [Suspect]
     Active Substance: DOXORUBICIN
     Dosage: 36.3 MG, UNK
     Route: 041
     Dates: start: 20180426, end: 20180426
  9. VINCRISTINE [Suspect]
     Active Substance: VINCRISTINE
     Dosage: 1 MG, (INFUSION RATE:09:00-09:10)
     Route: 041
     Dates: start: 20180405, end: 20180405
  10. VINCRISTINE [Suspect]
     Active Substance: VINCRISTINE
     Dosage: 1 MG, UNK
     Route: 041
     Dates: start: 20180426, end: 20180426
  11. CYCLOPHOSPHAMIDE. [Suspect]
     Active Substance: CYCLOPHOSPHAMIDE
     Dosage: 580 MG, (INFUSION TIME: 11:30-12:30)
     Route: 041
     Dates: start: 20180405, end: 20180405
  12. VIGANTOLETTEN [Concomitant]
     Active Substance: CHOLECALCIFEROL
     Indication: PROPHYLAXIS
     Dosage: UNK
     Route: 048
     Dates: start: 20180314
  13. ERYTHROZYTEN KONZENTRAT [Concomitant]
     Indication: ANAEMIA
     Dosage: UNK
     Route: 042
     Dates: start: 20180517, end: 20180517
  14. PEGFILGRASTIM [Concomitant]
     Active Substance: PEGFILGRASTIM
     Indication: PROPHYLAXIS
     Dosage: UNK
     Route: 058
     Dates: start: 20180427
  15. RITUXIMAB (UNKNOWN) [Suspect]
     Active Substance: RITUXIMAB
     Dosage: 544 MG, UNK
     Route: 041
     Dates: start: 20180517, end: 20180517
  16. PREDNISONE. [Suspect]
     Active Substance: PREDNISONE
     Dosage: 300 MG, UNK
     Route: 048
     Dates: start: 20180404, end: 20180408
  17. CYCLOPHOSPHAMIDE. [Suspect]
     Active Substance: CYCLOPHOSPHAMIDE
     Dosage: 580 MG, UNK
     Route: 041
     Dates: start: 20180426, end: 20180426
  18. RITUXIMAB (UNKNOWN) [Suspect]
     Active Substance: RITUXIMAB
     Dosage: 550 MG, UNK
     Route: 041
     Dates: start: 20180425, end: 20180425
  19. DOXORUBICIN [Suspect]
     Active Substance: DOXORUBICIN
     Dosage: 36.3 MG, UNK
     Route: 041
     Dates: start: 20180517, end: 20180517
  20. PREDNISONE. [Suspect]
     Active Substance: PREDNISONE
     Indication: DIFFUSE LARGE B-CELL LYMPHOMA
     Dosage: 300 MG
     Route: 048
     Dates: start: 20180315, end: 20180319
  21. CYCLOPHOSPHAMIDE. [Suspect]
     Active Substance: CYCLOPHOSPHAMIDE
     Indication: DIFFUSE LARGE B-CELL LYMPHOMA
     Dosage: 580 MG, UNK
     Route: 041
     Dates: start: 20180315, end: 20180315
  22. CAPTOPRIL HCT [Concomitant]
     Indication: HYPERTENSION
     Dosage: UNK
     Route: 048
  23. DOXORUBICIN [Suspect]
     Active Substance: DOXORUBICIN
     Indication: DIFFUSE LARGE B-CELL LYMPHOMA
     Dosage: 36.3 MG, UNK
     Route: 041
     Dates: start: 20180315, end: 20180315
  24. VINCRISTINE [Suspect]
     Active Substance: VINCRISTINE
     Dosage: 1 MG, UNK
     Route: 041
     Dates: start: 20180517, end: 20180517
  25. PREDNISONE. [Suspect]
     Active Substance: PREDNISONE
     Dosage: 240 MG, UNK
     Route: 048
     Dates: start: 20180426, end: 20180429

REACTIONS (8)
  - Injury [Recovered/Resolved]
  - Subileus [Recovered/Resolved]
  - Incorrect dose administered [Unknown]
  - Abdominal pain lower [Recovered/Resolved]
  - Oedema [Not Recovered/Not Resolved]
  - Anaemia [Recovered/Resolved]
  - Abdominal pain [Recovered/Resolved]
  - Incorrect product administration duration [Unknown]

NARRATIVE: CASE EVENT DATE: 20180321
